FAERS Safety Report 5697617-3 (Version None)
Quarter: 2008Q2

REPORT INFORMATION
  Report Type: 
  Country: None (occurrence: None)
  Receive Date: 20080408
  Receipt Date: 20080404
  Transmission Date: 20081010
  Serious: Yes (Hospitalization)
  Sender: FDA-Public Use
  Company Number: NL-ASTRAZENECA-2008AC00519

PATIENT
  Age: 20570 Day
  Sex: Female
  Weight: 90 kg

DRUGS (5)
  1. SEROQUEL [Suspect]
     Indication: SCHIZOPHRENIA
     Route: 048
     Dates: start: 20080101, end: 20080101
  2. SEROQUEL [Interacting]
     Route: 048
     Dates: start: 20080204, end: 20080204
  3. COZAAR [Interacting]
     Route: 048
     Dates: start: 20080101
  4. AMLODIPINE [Interacting]
     Dates: start: 20080101
  5. SLOW K TABLET [Concomitant]
     Dates: start: 20080101

REACTIONS (3)
  - DRUG INTERACTION [None]
  - HYPOTENSION [None]
  - ORTHOSTATIC HYPOTENSION [None]
